FAERS Safety Report 7625811-0 (Version None)
Quarter: 2011Q3

REPORT INFORMATION
  Report Type: 
  Country: None (occurrence: None)
  Receive Date: 20110721
  Receipt Date: 20110713
  Transmission Date: 20111222
  Serious: Yes (Other)
  Sender: FDA-Public Use
  Company Number: US-ELI_LILLY_AND_COMPANY-US201107004415

PATIENT
  Age: 56 Year
  Sex: Male

DRUGS (3)
  1. EFFIENT [Suspect]
     Dosage: 10 MG, QD
  2. ASPIRIN [Concomitant]
     Dosage: 325 MG, QD
     Route: 065
  3. EFFIENT [Suspect]
     Indication: MYOCARDIAL INFARCTION
     Dosage: 60 MG, LOADING
     Dates: start: 20110101, end: 20110701

REACTIONS (4)
  - GASTROINTESTINAL HAEMORRHAGE [None]
  - OFF LABEL USE [None]
  - GASTRIC CANCER [None]
  - GASTROINTESTINAL ULCER [None]
